FAERS Safety Report 6969556-9 (Version None)
Quarter: 2010Q3

REPORT INFORMATION
  Report Type: 
  Country: None (occurrence: None)
  Receive Date: 20100907
  Receipt Date: 20100907
  Transmission Date: 20110219
  Serious: Yes (Hospitalization)
  Sender: FDA-Public Use
  Company Number: None

PATIENT
  Age: 64 Year
  Sex: Female
  Weight: 36 kg

DRUGS (14)
  1. LYRICA [Suspect]
     Indication: BACK PAIN
     Dosage: 200MG TID PO
     Route: 048
  2. LYRICA [Suspect]
     Indication: OSTEOARTHRITIS
     Dosage: 200MG TID PO
     Route: 048
  3. GABAPENTIN [Suspect]
     Indication: BACK PAIN
     Dosage: 600MG TID PO
     Route: 048
  4. GABAPENTIN [Suspect]
     Indication: OSTEOARTHRITIS
     Dosage: 600MG TID PO
     Route: 048
  5. BONIVA [Concomitant]
  6. VITAMIN D [Concomitant]
  7. ADVAIR DISKUS 100/50 [Concomitant]
  8. XANAX [Concomitant]
  9. CYMBALTA [Concomitant]
  10. NEURONTIN [Concomitant]
  11. LYRICA [Concomitant]
  12. NORTRIPTYLINE HCL [Concomitant]
  13. PERCOCET [Concomitant]
  14. NEXIUM [Concomitant]

REACTIONS (7)
  - DEHYDRATION [None]
  - DIZZINESS [None]
  - FALL [None]
  - GAIT DISTURBANCE [None]
  - INCONTINENCE [None]
  - JOINT INJURY [None]
  - MALNUTRITION [None]
